FAERS Safety Report 26144973 (Version 1)
Quarter: 2025Q4

REPORT INFORMATION
  Report Type: Report from Study
  Country: US (occurrence: US)
  Receive Date: 20251211
  Receipt Date: 20251211
  Transmission Date: 20260118
  Serious: Yes (Hospitalization)
  Sender: ROCHE
  Company Number: US-ROCHE-10000455115

PATIENT
  Age: 62 Year
  Sex: Female

DRUGS (3)
  1. XOLAIR PFS [Suspect]
     Active Substance: OMALIZUMAB
     Indication: Rhinitis allergic
     Dosage: INJECT THE CONTENTS OF 1 DEVICE UNDER THE SKIN EVERY 2 WEEKS (TOTAL: 225MG EVERY 2 WEEKS)
     Route: 058
  2. XOLAIR PFS [Suspect]
     Active Substance: OMALIZUMAB
     Indication: Asthma
     Dosage: INJECT THE CONTENTS OF 1 DEVICE UNDER THE SKIN EVERY 2 WEEKS (TOTAL: 225MG EVERY 2 WEEKS)
     Route: 058
  3. XOLAIR PFS [Suspect]
     Active Substance: OMALIZUMAB
     Indication: Asthma

REACTIONS (3)
  - Pancreatitis acute [Unknown]
  - Pneumonia [Unknown]
  - Urinary tract infection [Unknown]
